FAERS Safety Report 9503485 (Version 1)
Quarter: 2013Q3

REPORT INFORMATION
  Report Type: Spontaneous
  Country: US (occurrence: US)
  Receive Date: 20130906
  Receipt Date: 20130906
  Transmission Date: 20140515
  Serious: Yes (Other)
  Sender: FDA-Public Use
  Company Number: US-UCBSA-096468

PATIENT
  Age: 41 Year
  Sex: Male

DRUGS (2)
  1. KEPPRA [Suspect]
     Indication: CONVULSION
     Dosage: ESCALATED DOSE
     Route: 048
  2. KEPPRA [Suspect]
     Indication: CONVULSION
     Route: 048

REACTIONS (4)
  - Loss of consciousness [Unknown]
  - Speech disorder [Unknown]
  - Visual impairment [Unknown]
  - Balance disorder [Unknown]
